FAERS Safety Report 5723066-5 (Version None)
Quarter: 2008Q2

REPORT INFORMATION
  Report Type: 
  Country: None (occurrence: None)
  Receive Date: 20080428
  Receipt Date: 20080428
  Transmission Date: 20081010
  Serious: Yes (Hospitalization)
  Sender: FDA-Public Use
  Company Number: None

PATIENT
  Age: 21 Year
  Sex: Male
  Weight: 88.64 kg

DRUGS (1)
  1. DEXTROMETHORPHAN/GUAIFENESIN [Suspect]
     Dates: start: 20080424, end: 20080425

REACTIONS (4)
  - INCORRECT DOSE ADMINISTERED [None]
  - NAUSEA [None]
  - SELF-MEDICATION [None]
  - VOMITING [None]
